FAERS Safety Report 6031519-8 (Version None)
Quarter: 2008Q4

REPORT INFORMATION
  Report Type: 
  Country: None (occurrence: None)
  Receive Date: 20081222
  Receipt Date: 20081022
  Transmission Date: 20090506
  Serious: No
  Sender: FDA-Public Use
  Company Number: US-WYE-H06530908

PATIENT
  Age: 52 Year
  Sex: Female
  Weight: 126.67 kg

DRUGS (8)
  1. PRISTIQ [Suspect]
     Indication: DEPRESSION
     Dosage: 50 MG 1X PER 1 DAY, ORAL
     Route: 048
     Dates: start: 20081020
  2. EFFEXOR XR [Suspect]
  3. FLEXERIL [Concomitant]
  4. LORTAB [Concomitant]
  5. GLUCOPHAGE [Concomitant]
  6. PREVACID [Concomitant]
  7. NEURONTIN [Concomitant]
  8. MICARDIS [Concomitant]

REACTIONS (4)
  - CRYING [None]
  - DISTURBANCE IN ATTENTION [None]
  - MOOD SWINGS [None]
  - NAUSEA [None]
